FAERS Safety Report 11227858 (Version 1)
Quarter: 2015Q2

REPORT INFORMATION
  Report Type: Report from Study
  Country: FR (occurrence: FR)
  Receive Date: 20150630
  Receipt Date: 20150630
  Transmission Date: 20150821
  Serious: Yes (Hospitalization)
  Sender: FDA-Public Use
  Company Number: FR-GLAXOSMITHKLINE-FR2015GSK088887

PATIENT
  Age: 59 Year
  Sex: Male

DRUGS (8)
  1. PLAVIX [Concomitant]
     Active Substance: CLOPIDOGREL BISULFATE
  2. NICOPATCH [Concomitant]
     Active Substance: NICOTINE
  3. TAHOR [Concomitant]
     Active Substance: ATORVASTATIN CALCIUM
  4. BISOPROLOL [Concomitant]
     Active Substance: BISOPROLOL
  5. RAMIPRIL. [Concomitant]
     Active Substance: RAMIPRIL
  6. OMEGA-3-ACID ETHYL ESTERS. [Suspect]
     Active Substance: OMEGA-3-ACID ETHYL ESTERS
     Indication: ISCHAEMIC HEART DISEASE PROPHYLAXIS
     Dosage: UNK
     Dates: start: 20070222
  7. KARDEGIC [Concomitant]
     Active Substance: ASPIRIN LYSINE
  8. OMEGA-3-ACID ETHYL ESTERS. [Suspect]
     Active Substance: OMEGA-3-ACID ETHYL ESTERS
     Dosage: UNK
     Dates: start: 20070711

REACTIONS (1)
  - Urinary tract infection [Unknown]

NARRATIVE: CASE EVENT DATE: 20101001
